FAERS Safety Report 8472875-0 (Version None)
Quarter: 2012Q2

REPORT INFORMATION
  Report Type: 
  Country: None (occurrence: None)
  Receive Date: 20120627
  Receipt Date: 20120206
  Transmission Date: 20120825
  Serious: No
  Sender: FDA-Public Use
  Company Number: US-MYLANLABS-2012S1002865

PATIENT
  Age: 64 Year
  Sex: Male

DRUGS (3)
  1. DOXYCYCLINE [Suspect]
     Indication: ROSACEA
     Route: 048
     Dates: start: 20120104, end: 20120204
  2. GEMZAR [Concomitant]
     Dates: start: 20120119
  3. OMEPRAZOLE [Suspect]
     Indication: GASTROOESOPHAGEAL REFLUX DISEASE
     Route: 048
     Dates: start: 20120123, end: 20120130

REACTIONS (4)
  - PETECHIAE [None]
  - RASH PUSTULAR [None]
  - RASH [None]
  - PRURITUS [None]
